FAERS Safety Report 4350019-4 (Version None)
Quarter: 2004Q2

REPORT INFORMATION
  Report Type: 
  Country: None (occurrence: None)
  Receive Date: 20040428
  Receipt Date: 20040428
  Transmission Date: 20050107
  Serious: Yes (Other)
  Sender: FDA-Public Use
  Company Number: None

PATIENT
  Age: 54 Year
  Sex: Male
  Weight: 87.9978 kg

DRUGS (1)
  1. NICOTINIC ACID [Suspect]
     Indication: HIGH DENSITY LIPOPROTEIN DECREASED
     Dosage: 250 MG Q 8 AM

REACTIONS (2)
  - ERYTHEMA [None]
  - FLUSHING [None]
